FAERS Safety Report 4541303-X (Version None)
Quarter: 2004Q4

REPORT INFORMATION
  Report Type: 
  Country: None (occurrence: None)
  Receive Date: 20041228
  Receipt Date: 20041220
  Transmission Date: 20050328
  Serious: Yes (Hospitalization)
  Sender: FDA-Public Use
  Company Number: A0416353A

PATIENT
  Age: 61 Year
  Sex: Female
  Weight: 70.7611 kg

DRUGS (25)
  1. AVANDIA [Suspect]
     Indication: DIABETES MELLITUS NON-INSULIN-DEPENDENT
     Dosage: ORAL
     Route: 048
     Dates: start: 20090825, end: 20010101
  2. CARVEDILOL [Concomitant]
  3. AMIODARONE [Concomitant]
  4. NATEGLINIDE [Concomitant]
  5. METFORMIN HCL [Concomitant]
  6. THYROXINE SODIUM [Concomitant]
  7. LEVOFLOXACIN [Concomitant]
  8. CONJUGATED ESTROGENS [Concomitant]
  9. ASPIRIN [Concomitant]
  10. BETA-BLOCKER [Concomitant]
  11. ENALAPRIL MALEATE [Concomitant]
  12. FRUSEMIDE [Concomitant]
  13. ACETAMINOPHEN [Concomitant]
  14. IBUPROFEN [Concomitant]
  15. ATORVASTATIN CALCIUM [Concomitant]
  16. SIMVASTATIN [Concomitant]
  17. NADOLOL [Concomitant]
  18. POTASSIUM SALT [Concomitant]
  19. GLIPIZIDE [Concomitant]
  20. WARFARIN SODIUM [Concomitant]
  21. INT./LONG-ACTING INSULIN [Concomitant]
  22. NICOTINIC ACID [Concomitant]
  23. ISOSORBIDE MONONITRATE [Concomitant]
  24. PRAVASTATIN SODIUM [Concomitant]
  25. SERTRALINE HYDROCHLORIDE [Concomitant]

REACTIONS (29)
  - ANGINA PECTORIS [None]
  - CARDIAC FAILURE CONGESTIVE [None]
  - CARDIAC STRESS TEST ABNORMAL [None]
  - CARPAL TUNNEL SYNDROME [None]
  - CHEST PAIN [None]
  - CORONARY ARTERY DISEASE [None]
  - CORONARY ARTERY OCCLUSION [None]
  - ECHOCARDIOGRAM ABNORMAL [None]
  - EJECTION FRACTION DECREASED [None]
  - EYELID PTOSIS [None]
  - FATIGUE [None]
  - HEART RATE IRREGULAR [None]
  - HYPOKINESIA [None]
  - IMPAIRED HEALING [None]
  - INJURY [None]
  - ISCHAEMIA [None]
  - LABORATORY TEST ABNORMAL [None]
  - MYOCARDIAL INFARCTION [None]
  - NORMOCHROMIC NORMOCYTIC ANAEMIA [None]
  - OSTEOARTHRITIS [None]
  - OSTEOPOROSIS [None]
  - PNEUMONIA [None]
  - POSITRON EMISSION TOMOGRAM ABNORMAL [None]
  - PULMONARY HYPERTENSION [None]
  - PULMONARY OEDEMA [None]
  - SLEEP APNOEA SYNDROME [None]
  - STRESS SYMPTOMS [None]
  - URINARY TRACT INFECTION [None]
  - VISUAL DISTURBANCE [None]
